FAERS Safety Report 10510620 (Version 3)
Quarter: 2015Q1

REPORT INFORMATION
  Report Type: Spontaneous
  Country: JP (occurrence: JP)
  Receive Date: 20141010
  Receipt Date: 20150305
  Transmission Date: 20150720
  Serious: Yes (Hospitalization, Other)
  Sender: FDA-Public Use
  Company Number: JP-009507513-1410JPN002799

PATIENT
  Age: 72 Year
  Sex: Female

DRUGS (2)
  1. MK-0000 [Suspect]
     Active Substance: INVESTIGATIONAL PRODUCT
  2. ALENDRONATE SODIUM. [Suspect]
     Active Substance: ALENDRONATE SODIUM
     Dosage: DAILY DOSE UNKNOWN
     Route: 065

REACTIONS (1)
  - Femur fracture [Unknown]
